FAERS Safety Report 9006184 (Version 1)
Quarter: 2013Q1

REPORT INFORMATION
  Report Type: Spontaneous
  Country: US (occurrence: US)
  Receive Date: 20130110
  Receipt Date: 20130110
  Transmission Date: 20140127
  Serious: Yes (Hospitalization)
  Sender: FDA-Public Use
  Company Number: US-009507513-0901USA02176

PATIENT
  Sex: Male
  Weight: 111.13 kg

DRUGS (8)
  1. SINGULAIR [Suspect]
     Indication: RHINITIS ALLERGIC
     Dosage: 1 TABLET DAILY
     Route: 048
     Dates: start: 20070818, end: 20080321
  2. HYDROCODONE BITARTRATE [Suspect]
     Indication: BACK PAIN
     Dosage: 1-2 TABLETS 2-3 TIMES
     Route: 048
     Dates: start: 20021117, end: 20080321
  3. ASTELIN (AZELASTINE HYDROCHLORIDE) [Concomitant]
  4. CRESTOR [Concomitant]
  5. LEXAPRO [Concomitant]
  6. NASACORT [Concomitant]
  7. PREVACID [Concomitant]
  8. BENICAR [Concomitant]

REACTIONS (2)
  - Suicide attempt [Unknown]
  - Intentional overdose [Unknown]
